FAERS Safety Report 4313287-0 (Version None)
Quarter: 2004Q1

REPORT INFORMATION
  Report Type: 
  Country: None (occurrence: None)
  Receive Date: 20040304
  Receipt Date: 20040223
  Transmission Date: 20041129
  Serious: Yes (Hospitalization)
  Sender: FDA-Public Use
  Company Number: 04P-163-0251090-00

PATIENT
  Age: 58 Year
  Sex: Male
  Weight: 113.3993 kg

DRUGS (4)
  1. SYNTHROID [Suspect]
     Indication: HYPOTHYROIDISM
     Dosage: 50 MCG, 1 IN 1 D, PER ORAL
     Route: 048
     Dates: start: 20010201
  2. METOPROLOL SUCCINATE [Concomitant]
  3. SERTRALINE HCL [Concomitant]
  4. BLOOD PRESSURE MEDICATIONS [Concomitant]

REACTIONS (1)
  - PULMONARY EMBOLISM [None]
